FAERS Safety Report 6099453-5 (Version None)
Quarter: 2009Q1

REPORT INFORMATION
  Report Type: 
  Country: None (occurrence: None)
  Receive Date: 20090226
  Receipt Date: 20090210
  Transmission Date: 20090719
  Serious: Yes (Hospitalization)
  Sender: FDA-Public Use
  Company Number: 2008S1010436

PATIENT
  Age: 63 Year
  Sex: Female
  Weight: 68.9467 kg

DRUGS (9)
  1. PHOSPHOSODA FLAVOR NOT SPECIFIED [Suspect]
     Indication: COLONOSCOPY
     Dosage: 90 ML; TOATAL; PO
     Route: 048
     Dates: start: 20080821, end: 20080822
  2. SIMVASTATIN [Concomitant]
  3. METOPROLOL [Concomitant]
  4. ESTROPIPATE [Concomitant]
  5. DILTIAZEM [Concomitant]
  6. ASPIRIN [Concomitant]
  7. CALCIUM [Concomitant]
  8. PREMARIN [Concomitant]
  9. GLYCOLAX [Concomitant]

REACTIONS (4)
  - HEADACHE [None]
  - NAUSEA [None]
  - NEPHROPATHY [None]
  - RENAL FAILURE ACUTE [None]
